FAERS Safety Report 4702909-8 (Version None)
Quarter: 2005Q2

REPORT INFORMATION
  Report Type: 
  Country: None (occurrence: None)
  Receive Date: 20050629
  Receipt Date: 20050624
  Transmission Date: 20051028
  Serious: Yes (Hospitalization)
  Sender: FDA-Public Use
  Company Number: PHBS2005CO09121

PATIENT
  Age: 57 Year
  Sex: Male

DRUGS (4)
  1. BERODUAL [Concomitant]
     Dosage: UNK, TID
     Dates: start: 20050314
  2. ALBUTEROL [Concomitant]
     Dates: start: 20050314
  3. BECLOMETHASONE DIPROPIONATE [Concomitant]
     Dosage: UNK, TID
     Dates: start: 20050314
  4. FORADIL [Suspect]
     Indication: CHRONIC OBSTRUCTIVE PULMONARY DISEASE
     Dosage: UNK, BID
     Dates: start: 20050314, end: 20050514

REACTIONS (1)
  - CHOKING [None]
